FAERS Safety Report 16762283 (Version 1)
Quarter: 2019Q3

REPORT INFORMATION
  Report Type: Spontaneous
  Country: FR (occurrence: FR)
  Receive Date: 20190831
  Receipt Date: 20190831
  Transmission Date: 20191005
  Serious: Yes (Hospitalization)
  Sender: FDA-Public Use
  Company Number: FR-ZYDUS-040124

PATIENT
  Age: 90 Year
  Sex: Female
  Weight: 81.75 kg

DRUGS (7)
  1. ASPEGIC [ACETYLSALICYLIC ACID] [Suspect]
     Active Substance: ASPIRIN
     Indication: OSTEOARTHRITIS
     Dosage: POWDER FOR ORAL SOLUTION IN SACHET-DOSE
     Route: 048
     Dates: end: 20190731
  2. AMLODIPINE [Concomitant]
     Active Substance: AMLODIPINE BESYLATE
     Indication: PRODUCT USED FOR UNKNOWN INDICATION
  3. FEMARA [Concomitant]
     Active Substance: LETROZOLE
     Indication: PRODUCT USED FOR UNKNOWN INDICATION
  4. ADENURIC [Concomitant]
     Active Substance: FEBUXOSTAT
     Indication: PRODUCT USED FOR UNKNOWN INDICATION
  5. PARACETAMOL [Concomitant]
     Active Substance: ACETAMINOPHEN
     Indication: PRODUCT USED FOR UNKNOWN INDICATION
  6. DICLOFENAC [Suspect]
     Active Substance: DICLOFENAC
     Indication: OSTEOARTHRITIS
     Dosage: 1 APPLICATION 3 TIMES / DAY
     Route: 003
     Dates: end: 20190731
  7. TENSIONORME [Suspect]
     Active Substance: BENDROFLUMETHIAZIDE\RESERPINE
     Indication: HYPERTENSION
     Dosage: 2.5 MG-0.1 MG?BREAKABLE TABLET
     Route: 048
     Dates: end: 20190801

REACTIONS (4)
  - Melaena [Recovering/Resolving]
  - Gastric ulcer [Recovering/Resolving]
  - Iron deficiency anaemia [Recovering/Resolving]
  - Dyspnoea exertional [Recovering/Resolving]

NARRATIVE: CASE EVENT DATE: 201907
